FAERS Safety Report 18625180 (Version 2)
Quarter: 2021Q1

REPORT INFORMATION
  Report Type: Spontaneous
  Country: US (occurrence: US)
  Receive Date: 20201217
  Receipt Date: 20210219
  Transmission Date: 20210419
  Serious: No
  Sender: FDA-Public Use
  Company Number: US-BIOVITRUM-2020US7410

PATIENT
  Age: 12 Year
  Sex: Female

DRUGS (3)
  1. KINERET [Suspect]
     Active Substance: ANAKINRA
     Indication: IMMUNE SYSTEM DISORDER
     Route: 058
     Dates: start: 20201023
  2. KINERET [Suspect]
     Active Substance: ANAKINRA
     Indication: NECROTISING COLITIS
     Route: 058
     Dates: start: 20201024
  3. KINERET [Suspect]
     Active Substance: ANAKINRA
     Indication: COVID-19

REACTIONS (5)
  - Vulvovaginal discomfort [Unknown]
  - Stomatitis [Unknown]
  - Off label use [Unknown]
  - Blister [Unknown]
  - Illness [Unknown]

NARRATIVE: CASE EVENT DATE: 20201024
